FAERS Safety Report 9915290 (Version 2)
Quarter: 2014Q1

REPORT INFORMATION
  Report Type: Report from Study
  Country: DE (occurrence: DE)
  Receive Date: 20140221
  Receipt Date: 20140311
  Transmission Date: 20141002
  Serious: Yes (Death)
  Sender: FDA-Public Use
  Company Number: DE-ROCHE-1353284

PATIENT
  Sex: Female

DRUGS (4)
  1. RANIBIZUMAB [Suspect]
     Indication: AGE-RELATED MACULAR DEGENERATION
     Route: 050
     Dates: start: 20120210
  2. RANIBIZUMAB [Suspect]
     Route: 050
     Dates: start: 20121113
  3. RANIBIZUMAB [Suspect]
     Route: 050
     Dates: start: 20121205
  4. RANIBIZUMAB [Suspect]
     Dosage: THE LAST DOSE WAS RECEIVED ON 15/JAN/2013.
     Route: 050
     Dates: start: 20130115

REACTIONS (1)
  - Death [Fatal]
